FAERS Safety Report 6241586-4 (Version None)
Quarter: 2009Q2

REPORT INFORMATION
  Report Type: 
  Country: None (occurrence: None)
  Receive Date: 20090623
  Receipt Date: 20040705
  Transmission Date: 20091009
  Serious: Yes (Life-Threatening, Hospitalization)
  Sender: FDA-Public Use
  Company Number: DE-ROCHE-373299

PATIENT
  Sex: Male

DRUGS (53)
  1. DACLIZUMAB [Suspect]
     Route: 042
     Dates: start: 20040330
  2. DACLIZUMAB [Suspect]
     Route: 042
     Dates: start: 20040414, end: 20040526
  3. MYCOPHENOLATE MOFETIL [Suspect]
     Dosage: DRUG: CELL CEPT
     Route: 048
     Dates: start: 20040330, end: 20040330
  4. MYCOPHENOLATE MOFETIL [Suspect]
     Route: 048
     Dates: start: 20040331, end: 20040331
  5. MYCOPHENOLATE MOFETIL [Suspect]
     Route: 048
     Dates: start: 20040601, end: 20040705
  6. MYCOPHENOLATE MOFETIL [Suspect]
     Route: 048
     Dates: start: 20050331, end: 20060816
  7. MYCOPHENOLATE MOFETIL [Suspect]
     Route: 048
     Dates: start: 20070109
  8. SIROLIMUS [Suspect]
     Dosage: DRUG: RAPAMUNE
     Route: 048
     Dates: start: 20040330
  9. SIROLIMUS [Suspect]
     Route: 048
     Dates: start: 20040402
  10. SIROLIMUS [Suspect]
     Route: 048
     Dates: start: 20040409
  11. SIROLIMUS [Suspect]
     Route: 048
     Dates: start: 20040511
  12. SIROLIMUS [Suspect]
     Route: 048
     Dates: start: 20040526
  13. SIROLIMUS [Suspect]
     Route: 048
     Dates: start: 20040705, end: 20040709
  14. SIROLIMUS [Suspect]
     Route: 048
     Dates: start: 20040711, end: 20040712
  15. TACROLIMUS [Suspect]
     Dosage: DRUG: PROGRAF
     Route: 048
     Dates: start: 20040712
  16. TACROLIMUS [Suspect]
     Route: 048
     Dates: start: 20050331
  17. TACROLIMUS [Suspect]
     Route: 048
     Dates: start: 20051010
  18. TACROLIMUS [Suspect]
     Route: 048
     Dates: start: 20060105
  19. TACROLIMUS [Suspect]
     Route: 048
     Dates: start: 20060328
  20. DECORTIN H [Suspect]
     Route: 048
     Dates: start: 20040401, end: 20040709
  21. DECORTIN H [Suspect]
     Route: 048
     Dates: start: 20040712
  22. DECORTIN H [Suspect]
     Route: 048
     Dates: start: 20050331
  23. DECORTIN H [Suspect]
     Route: 048
     Dates: start: 20060816
  24. DECORTIN H [Suspect]
     Route: 048
     Dates: start: 20070109
  25. HYDROCORTISON [Suspect]
     Route: 042
     Dates: start: 20040708, end: 20040710
  26. PREDNISOLONE [Suspect]
     Route: 042
     Dates: start: 20040330, end: 20040330
  27. PREDNISOLONE [Suspect]
     Route: 042
     Dates: start: 20040331, end: 20040401
  28. PREDNISOLONE [Suspect]
     Route: 042
     Dates: start: 20040709, end: 20040717
  29. VALGANCICLOVIR HCL [Concomitant]
     Route: 048
     Dates: start: 20040402, end: 20040705
  30. AMPHOTERICIN B [Concomitant]
     Dosage: ROUTE: SL
     Route: 050
     Dates: start: 20040331, end: 20040716
  31. AUGMENTIN '125' [Concomitant]
     Route: 048
     Dates: end: 20050101
  32. AUGMENTIN '125' [Concomitant]
     Route: 048
     Dates: start: 20050701
  33. AUGMENTIN '125' [Concomitant]
     Route: 048
     Dates: start: 20060325, end: 20060404
  34. BAYPEN [Concomitant]
     Route: 042
     Dates: start: 20050622, end: 20050628
  35. BELOC-ZOK [Concomitant]
     Route: 048
     Dates: start: 20040330, end: 20050217
  36. BELOC-ZOK [Concomitant]
     Route: 048
     Dates: start: 20060413
  37. CIPROBAY [Concomitant]
     Route: 048
     Dates: start: 20040405, end: 20040412
  38. CIPROBAY [Concomitant]
     Route: 048
     Dates: start: 20040601, end: 20040609
  39. CIPROBAY [Concomitant]
     Route: 048
     Dates: start: 20040705, end: 20040713
  40. CIPROBAY [Concomitant]
     Route: 048
     Dates: start: 20060314, end: 20060325
  41. CIPROBAY [Concomitant]
     Route: 048
     Dates: start: 20060413, end: 20060629
  42. COTRIM [Concomitant]
     Route: 048
     Dates: start: 20040402, end: 20040526
  43. CYMEVEN [Concomitant]
     Route: 042
     Dates: start: 20040330, end: 20040402
  44. CYNT [Concomitant]
     Route: 048
     Dates: start: 20050331
  45. FOSINORM [Concomitant]
     Route: 048
     Dates: start: 20050623
  46. LOCOL [Concomitant]
     Route: 048
     Dates: start: 20040331
  47. NORVASC [Concomitant]
     Route: 048
     Dates: start: 20040411
  48. ORTHOCLONE OKT3 [Concomitant]
     Dosage: DRUG: ORTHOCLONE
     Route: 042
     Dates: start: 20040712, end: 20040715
  49. ORTHOCLONE OKT3 [Concomitant]
     Route: 042
     Dates: start: 20040716, end: 20040720
  50. ROCEPHIN [Concomitant]
     Route: 042
     Dates: start: 20040330, end: 20040402
  51. TAZOBAC [Concomitant]
     Route: 042
     Dates: start: 20040708, end: 20040717
  52. AMPICILLIN AND SULBACTAM [Concomitant]
     Route: 048
     Dates: start: 20050628, end: 20050701
  53. VALCYTE [Concomitant]
     Route: 048
     Dates: start: 20040402, end: 20040705

REACTIONS (7)
  - CYTOMEGALOVIRUS INFECTION [None]
  - GASTROENTERITIS [None]
  - LEUKOPENIA [None]
  - PNEUMONIA [None]
  - RENAL FAILURE [None]
  - URETHRAL MEATUS STENOSIS [None]
  - URINARY RETENTION [None]
